FAERS Safety Report 9455657 (Version 3)
Quarter: 2014Q1

REPORT INFORMATION
  Report Type: Report from Study
  Country: IL (occurrence: IL)
  Receive Date: 20130813
  Receipt Date: 20140328
  Transmission Date: 20141002
  Serious: Yes (Hospitalization)
  Sender: FDA-Public Use
  Company Number: IL-ELI_LILLY_AND_COMPANY-IL201306002615

PATIENT
  Age: 71 Year
  Sex: Female
  Weight: 35.3 kg

DRUGS (10)
  1. MYOSTATIN ANTIBODY (LA424) LY2495655 IV [Suspect]
     Indication: PANCREATIC CARCINOMA
     Dosage: UNK UNK, CYCLICAL
     Route: 042
     Dates: start: 20130508, end: 20130605
  2. GEMCITABINE HYDROCHLORIDE [Suspect]
     Indication: PANCREATIC CARCINOMA
     Dosage: 1000 MG/M2, CYCLICAL
     Route: 042
     Dates: start: 20130508, end: 20130605
  3. ERLOTINIB [Suspect]
     Indication: PANCREATIC CARCINOMA
     Dosage: 100 MG, UNK
     Route: 048
     Dates: start: 20130508, end: 20130607
  4. LORAZEPAM [Concomitant]
     Indication: ANXIETY
     Dosage: UNK
     Dates: start: 200809
  5. CITALOPRAM [Concomitant]
     Indication: ANXIETY
     Dosage: UNK
     Dates: start: 20130508
  6. PANCRELIPASE [Concomitant]
     Indication: PANCREATIC CARCINOMA
     Dosage: UNK
     Dates: start: 2009
  7. DIPROZIN [Concomitant]
     Indication: PAIN
     Dosage: UNK
     Dates: start: 201301
  8. OXYCODONE [Concomitant]
     Indication: PAIN
     Dosage: UNK
     Dates: start: 20130410
  9. FENTANYL [Concomitant]
     Indication: PAIN
     Dosage: UNK
     Dates: start: 20130403
  10. LACTULOSE [Concomitant]
     Dosage: UNK
     Dates: start: 20130417

REACTIONS (1)
  - Hypersensitivity [Recovered/Resolved]
